FAERS Safety Report 12244945 (Version 1)
Quarter: 2016Q2

REPORT INFORMATION
  Report Type: Spontaneous
  Country: US (occurrence: None)
  Receive Date: 20160406
  Receipt Date: 20160406
  Transmission Date: 20160815
  Serious: Yes (Other)
  Sender: FDA-Public Use
  Company Number: None

PATIENT
  Age: 5 Year
  Sex: Female
  Weight: 14.97 kg

DRUGS (4)
  1. TUMS [Concomitant]
     Active Substance: CALCIUM CARBONATE
  2. MIRALAX [Suspect]
     Active Substance: POLYETHYLENE GLYCOL 3350
     Indication: BOWEL MOVEMENT IRREGULARITY
     Dosage: IN THE MORNING TAKEN BY MOUTH
     Route: 048
  3. BENEFIBER [Concomitant]
     Active Substance: STARCH, WHEAT
  4. MULTI VITAMIN [Concomitant]
     Active Substance: VITAMINS

REACTIONS (4)
  - Crying [None]
  - Panic disorder [None]
  - Mood altered [None]
  - Abnormal behaviour [None]

NARRATIVE: CASE EVENT DATE: 20160405
